FAERS Safety Report 8088279-9 (Version None)
Quarter: 2012Q1

REPORT INFORMATION
  Report Type: 
  Country: None (occurrence: None)
  Receive Date: 20120128
  Receipt Date: 20110412
  Transmission Date: 20120608
  Serious: No
  Sender: FDA-Public Use
  Company Number: US-ABBOTT-11P-163-0718390-00

PATIENT
  Age: 34 Year
  Sex: Female

DRUGS (4)
  1. FOLIC ACID [Concomitant]
     Indication: VITAMIN SUPPLEMENTATION
  2. HUMIRA [Suspect]
     Indication: SACROILIITIS
     Dates: start: 20110409
  3. METHOTREXATE [Concomitant]
     Indication: SACROILIITIS
  4. FLOVENT HFA [Concomitant]
     Indication: ASTHMA

REACTIONS (2)
  - NAUSEA [None]
  - FATIGUE [None]
